FAERS Safety Report 5605814-8 (Version None)
Quarter: 2008Q1

REPORT INFORMATION
  Report Type: 
  Country: None (occurrence: None)
  Receive Date: 20080129
  Receipt Date: 20080124
  Transmission Date: 20080703
  Serious: Yes (Death)
  Sender: FDA-Public Use
  Company Number: GB-WYE-G00946108

PATIENT
  Age: 39 Year
  Sex: Male

DRUGS (3)
  1. EFFEXOR [Suspect]
     Indication: NARCOLEPSY
     Route: 048
     Dates: start: 20070724
  2. SODIUM OXYBATE [Suspect]
     Indication: NARCOLEPSY
     Route: 048
     Dates: start: 20071211
  3. DEXAMFETAMINE [Suspect]
     Indication: NARCOLEPSY
     Dosage: UNKNOWN
     Route: 048
     Dates: start: 20060502

REACTIONS (1)
  - SUDDEN DEATH [None]
